FAERS Safety Report 14159178 (Version 1)
Quarter: 2017Q4

REPORT INFORMATION
  Report Type: Spontaneous
  Country: MX (occurrence: MX)
  Receive Date: 20171103
  Receipt Date: 20171103
  Transmission Date: 20180321
  Serious: Yes (Other)
  Sender: FDA-Public Use
  Company Number: MX-IMPAX LABORATORIES, INC-2017-IPXL-03035

PATIENT
  Age: 46 Year
  Sex: Female

DRUGS (4)
  1. BUDESONIDE. [Suspect]
     Active Substance: BUDESONIDE
     Indication: IMMUNODEFICIENCY COMMON VARIABLE
     Dosage: 100 MCG, 1 INHALATION EVERY 12 HOURS
     Route: 055
  2. IMMUNOGLOBULIN (IMMUNOGLOBULIN HUMAN NORMAL) [Suspect]
     Active Substance: HUMAN IMMUNOGLOBULIN G
     Indication: IMMUNODEFICIENCY COMMON VARIABLE
     Dosage: 400-800 MG/KG/DOSE EVERY 21 DAYS
     Route: 065
  3. BUDESONIDE W/FORMOTEROL [Suspect]
     Active Substance: BUDESONIDE\FORMOTEROL
     Indication: IMMUNODEFICIENCY COMMON VARIABLE
     Dosage: 160/4.5, 1 INHALATION EVERY 12 HOURS
     Route: 055
  4. CLARITHROMYCIN. [Suspect]
     Active Substance: CLARITHROMYCIN
     Indication: PROPHYLAXIS
     Dosage: 250 MG, EVERY 12 HOUR
     Route: 065

REACTIONS (5)
  - Interstitial lung disease [Unknown]
  - Atelectasis [None]
  - Pneumonia [Unknown]
  - Bronchiectasis [Unknown]
  - Pulmonary fibrosis [None]

NARRATIVE: CASE EVENT DATE: 201605
